FAERS Safety Report 8846771 (Version 1)
Quarter: 2012Q4

REPORT INFORMATION
  Report Type: 
  Country: ES (occurrence: ES)
  Receive Date: 20121018
  Receipt Date: 20121018
  Transmission Date: 20130627
  Serious: Yes (Hospitalization)
  Sender: FDA-Public Use
  Company Number: ES-RANBAXY-2012R1-60913

PATIENT
  Age: 54 Year
  Sex: Male

DRUGS (1)
  1. METFORMIN [Suspect]
     Indication: TYPE 1 DIABETES MELLITUS
     Dosage: 850 mg, bid
     Route: 065

REACTIONS (4)
  - Lactic acidosis [Recovering/Resolving]
  - Blindness [Recovered/Resolved]
  - Renal failure acute [Unknown]
  - Hypoglycaemia [Unknown]
